FAERS Safety Report 7546609-8 (Version None)
Quarter: 2011Q2

REPORT INFORMATION
  Report Type: 
  Country: None (occurrence: None)
  Receive Date: 20110614
  Receipt Date: 20110526
  Transmission Date: 20111010
  Serious: Yes (Hospitalization)
  Sender: FDA-Public Use
  Company Number: US-BAYER-201037635NA

PATIENT
  Age: 42 Year
  Sex: Female
  Weight: 74.83 kg

DRUGS (9)
  1. LEXAPRO [Concomitant]
     Indication: ANXIETY
  2. LEXAPRO [Concomitant]
     Indication: OBSESSIVE-COMPULSIVE DISORDER
     Dosage: 10 MG, UNK
     Route: 048
     Dates: start: 20000101
  3. YASMIN [Suspect]
     Indication: ORAL CONTRACEPTION
     Dosage: UNK UNK, UNK
     Route: 048
     Dates: start: 20030201, end: 20080101
  4. GLUCOPHAGE [Concomitant]
     Indication: POLYCYSTIC OVARIES
     Dosage: 2000 MG, UNK
     Route: 048
     Dates: start: 20000101, end: 20070101
  5. CYTOMEL [Concomitant]
     Dosage: 10 MG, QD
     Route: 048
  6. YASMIN [Suspect]
     Indication: MENSTRUAL CYCLE MANAGEMENT
  7. WELLBUTRIN [Concomitant]
     Indication: OBSESSIVE-COMPULSIVE DISORDER
     Dosage: 300 MG, UNK
     Route: 048
     Dates: start: 20000101
  8. WELLBUTRIN [Concomitant]
     Indication: ANXIETY
  9. SYNTHROID [Concomitant]
     Indication: POLYCYSTIC OVARIES
     Dosage: 150 ?G, UNK
     Route: 048
     Dates: start: 20030101

REACTIONS (7)
  - CHOLELITHIASIS [None]
  - CHOLECYSTITIS ACUTE [None]
  - GALLBLADDER DISORDER [None]
  - POST CHOLECYSTECTOMY SYNDROME [None]
  - GASTROINTESTINAL DISORDER [None]
  - ABDOMINAL PAIN [None]
  - CHOLECYSTITIS CHRONIC [None]
